FAERS Safety Report 7519796-5 (Version None)
Quarter: 2011Q2

REPORT INFORMATION
  Report Type: 
  Country: None (occurrence: None)
  Receive Date: 20110524
  Receipt Date: 20110502
  Transmission Date: 20111010
  Serious: Yes (Hospitalization)
  Sender: FDA-Public Use
  Company Number: JPI-P-015052

PATIENT
  Age: 63 Year
  Sex: Female

DRUGS (7)
  1. BUDESONIDE W/FORMOTEROL FUMARATE [Concomitant]
  2. AMLODIPINE [Concomitant]
  3. FLUOXETINE HYDROCHLORIDE [Concomitant]
  4. OMEPRAZOLE [Concomitant]
  5. PRAMIPEXOLE DIHYDROCHLOIRDE [Concomitant]
  6. XYREM [Suspect]
     Indication: NARCOLEPSY
     Dosage: 3.5 GM (1.75 GM,2 IN 1 D), ORAL
     Route: 048
     Dates: start: 20090908
  7. IMMUNE GLOBULIN NOS [Concomitant]

REACTIONS (1)
  - LUNG INFECTION [None]
